FAERS Safety Report 8549493-9 (Version None)
Quarter: 2012Q3

REPORT INFORMATION
  Report Type: 
  Country: None (occurrence: None)
  Receive Date: 20120730
  Receipt Date: 20120725
  Transmission Date: 20120928
  Serious: Yes (Death)
  Sender: FDA-Public Use
  Company Number: US-ASTRAZENECA-2012SE53121

PATIENT
  Sex: Male

DRUGS (1)
  1. SYNAGIS [Suspect]
     Route: 030

REACTIONS (1)
  - DEATH [None]
